FAERS Safety Report 12440082 (Version 2)
Quarter: 2016Q4

REPORT INFORMATION
  Report Type: Spontaneous
  Country: FR (occurrence: FR)
  Receive Date: 20160606
  Receipt Date: 20161228
  Transmission Date: 20170207
  Serious: Yes (Disabling, Congenital Anomaly)
  Sender: FDA-Public Use
  Company Number: FR-ABBVIE-16P-056-1645439-00

PATIENT
  Sex: Female

DRUGS (2)
  1. DEPAKINE [Suspect]
     Active Substance: VALPROATE SODIUM
     Route: 063
  2. DEPAKINE [Suspect]
     Active Substance: VALPROATE SODIUM
     Indication: MATERNAL EXPOSURE TIMING UNSPECIFIED
     Route: 064

REACTIONS (9)
  - Dysmorphism [Not Recovered/Not Resolved]
  - Scoliosis [Not Recovered/Not Resolved]
  - Learning disorder [Not Recovered/Not Resolved]
  - Premature baby [Recovered/Resolved]
  - Exposure during breast feeding [Unknown]
  - Disability [Unknown]
  - Foetal exposure during pregnancy [Unknown]
  - Dysarthria [Not Recovered/Not Resolved]
  - Intellectual disability [Not Recovered/Not Resolved]
